FAERS Safety Report 19229003 (Version 1)
Quarter: 2021Q2

REPORT INFORMATION
  Report Type: Spontaneous
  Country: DE (occurrence: DE)
  Receive Date: 20210506
  Receipt Date: 20210506
  Transmission Date: 20210717
  Serious: Yes (Hospitalization)
  Sender: FDA-Public Use
  Company Number: PT-SUNOVION-2021SUN001672

PATIENT

DRUGS (7)
  1. REGENON [Concomitant]
     Active Substance: DIETHYLPROPION HYDROCHLORIDE
     Dosage: 60 MG, QD
     Route: 048
     Dates: start: 202101
  2. L?THYROX [Concomitant]
     Active Substance: LEVOTHYROXINE SODIUM
     Dosage: 25 ?G, QD
     Route: 048
  3. TOPIRAMATE. [Concomitant]
     Active Substance: TOPIRAMATE
     Dosage: 200 MG, BID
     Route: 048
  4. PIPAMPERONE [Concomitant]
     Active Substance: PIPAMPERONE
     Dosage: 40 MG, QD
     Route: 048
     Dates: start: 201903
  5. FRISIUM [Concomitant]
     Active Substance: CLOBAZAM
     Dosage: 20 MG, BID
     Route: 048
     Dates: start: 201511
  6. VIMPAT [Concomitant]
     Active Substance: LACOSAMIDE
     Dosage: 200 MG, BID
     Route: 048
  7. ZEBINIX [Suspect]
     Active Substance: ESLICARBAZEPINE ACETATE
     Indication: EPILEPSY
     Dosage: 1200 MG
     Route: 048
     Dates: start: 202009

REACTIONS (3)
  - Osteoporosis [Unknown]
  - Ankle fracture [Recovered/Resolved]
  - Ankle fracture [Recovered/Resolved]

NARRATIVE: CASE EVENT DATE: 202010
